FAERS Safety Report 8789362 (Version 1)
Quarter: 2012Q4

REPORT INFORMATION
  Report Type: Spontaneous
  Country: US (occurrence: None)
  Receive Date: 20120910
  Receipt Date: 20120910
  Transmission Date: 20130627
  Serious: No
  Sender: FDA-Public Use
  Company Number: None

PATIENT
  Age: 35 Year
  Sex: Female

DRUGS (1)
  1. CEREZYME [Suspect]
     Indication: GAUCHER^S DISEASE
     Dates: start: 2001, end: 2003

REACTIONS (4)
  - Oedema peripheral [None]
  - Piloerection [None]
  - Throat irritation [None]
  - Infusion related reaction [None]
